FAERS Safety Report 12553013 (Version 1)
Quarter: 2016Q3

REPORT INFORMATION
  Report Type: Report from Study
  Country: US (occurrence: US)
  Receive Date: 20160713
  Receipt Date: 20160713
  Transmission Date: 20161109
  Serious: Yes (Death, Hospitalization, Other)
  Sender: FDA-Public Use
  Company Number: US-MALLINCKRODT-T201602762

PATIENT
  Age: 57 Year
  Sex: Female

DRUGS (1)
  1. REPOSITORY CORTICOTROPIN INJECTION [Suspect]
     Active Substance: CORTICOTROPIN
     Indication: SARCOIDOSIS
     Dosage: 1 ML EVERY THREE DAYS / EVERY 72 HOURS
     Route: 058
     Dates: start: 20160317

REACTIONS (9)
  - Blood glucose increased [Not Recovered/Not Resolved]
  - Hepatic neoplasm [Unknown]
  - Renal impairment [Unknown]
  - Unresponsive to stimuli [Fatal]
  - Pulmonary oedema [Fatal]
  - Furuncle [Unknown]
  - Dyspnoea [Unknown]
  - Sarcoidosis [Fatal]
  - Lung neoplasm [Unknown]

NARRATIVE: CASE EVENT DATE: 201605
